FAERS Safety Report 15889330 (Version 1)
Quarter: 2019Q1

REPORT INFORMATION
  Report Type: Spontaneous
  Country: FR (occurrence: FR)
  Receive Date: 20190130
  Receipt Date: 20190130
  Transmission Date: 20190417
  Serious: Yes (Hospitalization, Other)
  Sender: FDA-Public Use
  Company Number: FR-SAKK-2019SA023525AA

PATIENT
  Age: 57 Year
  Sex: Male

DRUGS (1)
  1. CEREZYME [Suspect]
     Active Substance: IMIGLUCERASE
     Dosage: UNK, UNK
     Route: 041

REACTIONS (3)
  - Fall [Unknown]
  - Pelvic fracture [Unknown]
  - Facial bones fracture [Unknown]
